FAERS Safety Report 17924149 (Version 2)
Quarter: 2020Q3

REPORT INFORMATION
  Report Type: Spontaneous
  Country: US (occurrence: US)
  Receive Date: 20200622
  Receipt Date: 20200817
  Transmission Date: 20201103
  Serious: Yes (Other)
  Sender: FDA-Public Use
  Company Number: US-KYOWAKIRIN-2020BKK010118

PATIENT

DRUGS (1)
  1. NOURIANZ [Suspect]
     Active Substance: ISTRADEFYLLINE
     Indication: PARKINSON^S DISEASE
     Dosage: 20 MG DAILY
     Route: 048
     Dates: start: 20200514, end: 2020

REACTIONS (4)
  - Constipation [Unknown]
  - Nausea [Unknown]
  - Dizziness [Unknown]
  - Surgery [Unknown]

NARRATIVE: CASE EVENT DATE: 2020
